FAERS Safety Report 4711261-3 (Version None)
Quarter: 2005Q3

REPORT INFORMATION
  Report Type: 
  Country: None (occurrence: None)
  Receive Date: 20050711
  Receipt Date: 20050623
  Transmission Date: 20060218
  Serious: Yes (Death, Hospitalization, Other)
  Sender: FDA-Public Use
  Company Number: 2004-00711

PATIENT
  Age: 72 Year
  Sex: Male
  Weight: 93.3 kg

DRUGS (11)
  1. VELCADE [Suspect]
     Indication: MULTIPLE MYELOMA
     Dosage: 1.30 MG/M2, 2/WEEK, IV BOLUS
     Route: 040
     Dates: start: 20021119, end: 20030107
  2. CARAFATE [Concomitant]
  3. METROPOLOL (METROPOLOL) [Concomitant]
  4. FOLIC ACID [Concomitant]
  5. ALDACTONE [Concomitant]
  6. PROCRIT [Concomitant]
  7. LOPRESSOR [Concomitant]
  8. MS CONTIN [Concomitant]
  9. MYLANTA (MAGNESIUM HYDROXIDE, SIMETICONE, ALUMINIUM HYDROXIDE GEL, DRI [Concomitant]
  10. ZOVIRAX [Concomitant]
  11. DECLOMYCIN [Concomitant]

REACTIONS (31)
  - ABDOMINAL DISTENSION [None]
  - ACTIVATED PARTIAL THROMBOPLASTIN TIME ABNORMAL [None]
  - BLOOD CREATINE PHOSPHOKINASE ABNORMAL [None]
  - BLOOD CREATINE PHOSPHOKINASE MB ABNORMAL [None]
  - BLOOD SODIUM DECREASED [None]
  - BLOOD UREA INCREASED [None]
  - BLOOD URIC ACID ABNORMAL [None]
  - BOWEL SOUNDS ABNORMAL [None]
  - CARBON DIOXIDE DECREASED [None]
  - CARDIAC FAILURE CONGESTIVE [None]
  - CHEST PAIN [None]
  - CONSTIPATION [None]
  - CYANOSIS CENTRAL [None]
  - DISEASE PROGRESSION [None]
  - DRUG INTOLERANCE [None]
  - DRUG TOXICITY [None]
  - DYSPNOEA [None]
  - FATIGUE [None]
  - FLUID RETENTION [None]
  - GENERAL PHYSICAL HEALTH DETERIORATION [None]
  - ILEUS [None]
  - LIPASE ABNORMAL [None]
  - METABOLIC FUNCTION TEST ABNORMAL [None]
  - OEDEMA [None]
  - OEDEMA PERIPHERAL [None]
  - PANCYTOPENIA [None]
  - PO2 DECREASED [None]
  - PROTHROMBIN TIME ABNORMAL [None]
  - RASH [None]
  - RESPIRATORY ARREST [None]
  - URINE ANALYSIS ABNORMAL [None]
